FAERS Safety Report 7620333-5 (Version None)
Quarter: 2011Q3

REPORT INFORMATION
  Report Type: 
  Country: None (occurrence: None)
  Receive Date: 20110719
  Receipt Date: 20110713
  Transmission Date: 20111222
  Serious: Yes (Death)
  Sender: FDA-Public Use
  Company Number: PHHY2011CA62269

PATIENT
  Sex: Female

DRUGS (2)
  1. DIAZEPAM [Concomitant]
     Dosage: 2 MG, UNK
  2. ZOLEDRONOC ACID [Suspect]
     Indication: OSTEOPOROSIS
     Dosage: 5 MG,
     Route: 042
     Dates: start: 20101008

REACTIONS (1)
  - CEREBRAL HAEMORRHAGE [None]
